FAERS Safety Report 8482472-9 (Version None)
Quarter: 2012Q3

REPORT INFORMATION
  Report Type: 
  Country: None (occurrence: None)
  Receive Date: 20120702
  Receipt Date: 20120621
  Transmission Date: 20120928
  Serious: Yes (Hospitalization)
  Sender: FDA-Public Use
  Company Number: IE-JNJFOC-20120514776

PATIENT
  Sex: Male

DRUGS (4)
  1. LOPERAMIDE HCL [Suspect]
     Route: 048
  2. AZATHIOPRINE [Concomitant]
     Indication: PRODUCT USED FOR UNKNOWN INDICATION
     Dosage: 150 (UNITS NOT SPECIFIED)
     Route: 065
  3. LOPERAMIDE HCL [Suspect]
     Indication: DIARRHOEA
     Route: 048
  4. MESALAMINE [Concomitant]
     Indication: PRODUCT USED FOR UNKNOWN INDICATION
     Route: 065

REACTIONS (3)
  - HAEMORRHAGE [None]
  - THERAPEUTIC RESPONSE UNEXPECTED [None]
  - HOSPITALISATION [None]
